FAERS Safety Report 21017512 (Version 2)
Quarter: 2022Q3

REPORT INFORMATION
  Report Type: Report from Study
  Country: US (occurrence: US)
  Receive Date: 20220628
  Receipt Date: 20220729
  Transmission Date: 20221027
  Serious: No
  Sender: FDA-Public Use
  Company Number: US-Zogenix International Limited, A wholly owned subsidiary of Zogenix, Inc.-2022ZX000737

PATIENT
  Age: 21 Year
  Sex: Female
  Weight: 44.3 kg

DRUGS (2)
  1. FINTEPLA [Suspect]
     Active Substance: FENFLURAMINE
     Indication: Product used for unknown indication
     Dosage: 0.53 MG/KG/DAY
     Route: 048
  2. FINTEPLA [Suspect]
     Active Substance: FENFLURAMINE
     Dosage: 0.58 MG/KG/DAY

REACTIONS (3)
  - Mitral valve thickening [Unknown]
  - Tricuspid valve incompetence [Unknown]
  - Mitral valve incompetence [Unknown]

NARRATIVE: CASE EVENT DATE: 20220506
